FAERS Safety Report 16287044 (Version 1)
Quarter: 2019Q2

REPORT INFORMATION
  Report Type: Spontaneous
  Country: US (occurrence: US)
  Receive Date: 20190508
  Receipt Date: 20190508
  Transmission Date: 20190711
  Serious: Yes (Other)
  Sender: FDA-Public Use
  Company Number: US-BECTON DICKINSON-2019BDN00203

PATIENT
  Sex: Female
  Weight: 81.04 kg

DRUGS (3)
  1. REMODULIN [Suspect]
     Active Substance: TREPROSTINIL
     Indication: PULMONARY ARTERIAL HYPERTENSION
     Dosage: 32 NG/KG/MIN
     Route: 042
     Dates: start: 20190131
  2. CHLORAPREP [Suspect]
     Active Substance: CHLORHEXIDINE GLUCONATE\ISOPROPYL ALCOHOL
     Indication: INFECTION PROPHYLAXIS
     Route: 061
  3. OPSUMIT [Concomitant]
     Active Substance: MACITENTAN

REACTIONS (4)
  - Pruritus [Unknown]
  - Vascular device infection [Recovered/Resolved]
  - Clostridium difficile infection [Unknown]
  - Burning sensation [Unknown]
